FAERS Safety Report 18183142 (Version 5)
Quarter: 2020Q4

REPORT INFORMATION
  Report Type: Spontaneous
  Country: US (occurrence: US)
  Receive Date: 20200821
  Receipt Date: 20201013
  Transmission Date: 20210113
  Serious: Yes (Hospitalization, Other)
  Sender: FDA-Public Use
  Company Number: US-SEATTLE GENETICS-2020SGN03476

PATIENT
  Sex: Female

DRUGS (2)
  1. CAPECITABINE. [Concomitant]
     Active Substance: CAPECITABINE
     Indication: BREAST CANCER FEMALE
  2. TUKYSA [Suspect]
     Active Substance: TUCATINIB
     Indication: BREAST CANCER FEMALE
     Dosage: UNK, BID

REACTIONS (26)
  - Infection [Unknown]
  - Urinary tract infection [Unknown]
  - Sensory loss [Unknown]
  - Weight decreased [Unknown]
  - Drug intolerance [Unknown]
  - Product dose omission issue [Unknown]
  - Disease progression [Unknown]
  - Bladder catheterisation [Unknown]
  - Bone neoplasm [Unknown]
  - Gait inability [Unknown]
  - White blood cell count increased [Unknown]
  - Insomnia [Unknown]
  - Skin exfoliation [Unknown]
  - Nausea [Unknown]
  - Wheelchair user [Unknown]
  - Throat cancer [Unknown]
  - Vomiting [Unknown]
  - Vertebral column mass [Unknown]
  - Hallucination [Unknown]
  - Decreased appetite [Unknown]
  - Hepatic cirrhosis [Unknown]
  - Malaise [Unknown]
  - Hypoaesthesia [Unknown]
  - Neuralgia [Unknown]
  - Blood potassium decreased [Unknown]
  - Blood magnesium decreased [Unknown]
